FAERS Safety Report 6438216-5 (Version None)
Quarter: 2009Q4

REPORT INFORMATION
  Report Type: 
  Country: None (occurrence: None)
  Receive Date: 20091112
  Receipt Date: 20091105
  Transmission Date: 20100525
  Serious: Yes (Other)
  Sender: FDA-Public Use
  Company Number: BR-PFIZER INC-2009251292

PATIENT
  Age: 54 Year
  Sex: Male
  Weight: 80 kg

DRUGS (4)
  1. VIAGRA [Suspect]
     Indication: ERECTILE DYSFUNCTION
     Dosage: UNK MG, AS NEEDED
     Route: 048
     Dates: start: 20060101
  2. LOSARTAN POTASSIUM [Concomitant]
     Indication: HYPERTENSION
     Dosage: UNK
     Dates: start: 20090101
  3. LANSOPRAZOLE [Concomitant]
     Indication: GASTRITIS
  4. AMOXICILLIN [Concomitant]

REACTIONS (4)
  - BLOOD BILIRUBIN INCREASED [None]
  - HELICOBACTER GASTRITIS [None]
  - HEPATIC ENZYME INCREASED [None]
  - SERUM FERRITIN INCREASED [None]
